FAERS Safety Report 13996255 (Version 2)
Quarter: 2017Q4

REPORT INFORMATION
  Report Type: Spontaneous
  Country: US (occurrence: US)
  Receive Date: 20170921
  Receipt Date: 20171015
  Transmission Date: 20180321
  Serious: No
  Sender: FDA-Public Use
  Company Number: US-BRISTOL-MYERS SQUIBB COMPANY-BMS-2017-083746

PATIENT
  Sex: Female

DRUGS (2)
  1. SIMVASTATIN. [Concomitant]
     Active Substance: SIMVASTATIN
     Indication: PRODUCT USED FOR UNKNOWN INDICATION
     Route: 065
  2. SPRYCEL [Suspect]
     Active Substance: DASATINIB
     Indication: WHITE BLOOD CELL COUNT INCREASED
     Dosage: 100 MG, DAILY
     Route: 048
     Dates: start: 20170812

REACTIONS (6)
  - Product use in unapproved indication [Unknown]
  - Osteoporosis [Unknown]
  - Nausea [Unknown]
  - Adverse event [Unknown]
  - Rash [Recovering/Resolving]
  - Headache [Recovered/Resolved]
